FAERS Safety Report 13222484 (Version 2)
Quarter: 2017Q2

REPORT INFORMATION
  Report Type: Spontaneous
  Country: US (occurrence: US)
  Receive Date: 20170212
  Receipt Date: 20170406
  Transmission Date: 20170830
  Serious: No
  Sender: FDA-Public Use
  Company Number: US-LEO PHARMA-245772

PATIENT
  Sex: Female

DRUGS (2)
  1. PICATO [Suspect]
     Active Substance: INGENOL MEBUTATE
     Indication: ERYTHEMA
  2. PICATO [Suspect]
     Active Substance: INGENOL MEBUTATE
     Indication: SOLAR LENTIGO
     Dosage: ONLY USED 1 TUBE AND 1 APPLICATION
     Route: 061
     Dates: start: 20170208

REACTIONS (9)
  - Application site pain [Recovered/Resolved]
  - Wrong technique in product usage process [Unknown]
  - Application site swelling [Recovered/Resolved]
  - Application site pain [Recovered/Resolved]
  - Product use in unapproved indication [Unknown]
  - Application site inflammation [Recovered/Resolved]
  - Sleep disorder [Recovered/Resolved]
  - Application site erythema [Recovered/Resolved]
  - Incorrect drug administration duration [Unknown]

NARRATIVE: CASE EVENT DATE: 20170208
